FAERS Safety Report 17418827 (Version 1)
Quarter: 2020Q1

REPORT INFORMATION
  Report Type: Spontaneous
  Country: US (occurrence: US)
  Receive Date: 20200214
  Receipt Date: 20200214
  Transmission Date: 20200409
  Serious: No
  Sender: FDA-Public Use
  Company Number: US-009507513-2002USA005536

PATIENT
  Sex: Female

DRUGS (1)
  1. NEXPLANON [Suspect]
     Active Substance: ETONOGESTREL
     Indication: CONTRACEPTION
     Dosage: 1IMPLANY EVERY 3 YEARS
     Route: 059
     Dates: start: 20171223, end: 20191220

REACTIONS (2)
  - Mood swings [Unknown]
  - Vaginal haemorrhage [Unknown]
